FAERS Safety Report 6982798-1 (Version None)
Quarter: 2010Q3

REPORT INFORMATION
  Report Type: 
  Country: None (occurrence: None)
  Receive Date: 20100914
  Receipt Date: 20100414
  Transmission Date: 20110219
  Serious: Yes (Other)
  Sender: FDA-Public Use
  Company Number: US-PFIZER INC-2010047953

PATIENT
  Sex: Female
  Weight: 77.098 kg

DRUGS (6)
  1. LYRICA [Suspect]
     Indication: NEUROPATHY PERIPHERAL
     Dosage: 75 MG, 2X/DAY
     Route: 048
     Dates: start: 20090701
  2. CYMBALTA [Concomitant]
     Indication: PAIN
     Dosage: UNK
  3. CELEBREX [Concomitant]
     Dosage: UNK
  4. MORPHINE [Concomitant]
     Dosage: UNK
  5. ZANTAC [Concomitant]
     Dosage: UNK
  6. FENTANYL [Concomitant]
     Indication: PAIN
     Dosage: UNK

REACTIONS (15)
  - ATAXIA [None]
  - CONSTIPATION [None]
  - DIZZINESS [None]
  - DRUG EFFECT DECREASED [None]
  - DRY MOUTH [None]
  - DYSPHAGIA [None]
  - FATIGUE [None]
  - LEARNING DISABILITY [None]
  - MUSCLE TWITCHING [None]
  - MUSCULAR WEAKNESS [None]
  - OEDEMA [None]
  - SOMNOLENCE [None]
  - THINKING ABNORMAL [None]
  - VISION BLURRED [None]
  - WEIGHT INCREASED [None]
